FAERS Safety Report 21001097 (Version 1)
Quarter: 2022Q2

REPORT INFORMATION
  Report Type: Spontaneous
  Country: US (occurrence: US)
  Receive Date: 20220624
  Receipt Date: 20220624
  Transmission Date: 20220721
  Serious: No
  Sender: FDA-Public Use
  Company Number: US-BioHaven Pharmaceuticals-2022BHV000725

PATIENT
  Age: 20 Year

DRUGS (2)
  1. NURTEC ODT [Suspect]
     Active Substance: RIMEGEPANT SULFATE
     Indication: Migraine
     Route: 065
  2. COVID-19 Vaccine [Concomitant]
     Indication: Immunisation
     Dosage: PATIENT HAD TWO SHOTS AND HAS A SCHEDULED BOOSTER FOR APRIL 2022.
     Route: 065

REACTIONS (1)
  - Drug ineffective [Unknown]
